FAERS Safety Report 5918257-4 (Version None)
Quarter: 2008Q4

REPORT INFORMATION
  Report Type: 
  Country: None (occurrence: None)
  Receive Date: 20081010
  Receipt Date: 20080929
  Transmission Date: 20090506
  Serious: Yes (Other)
  Sender: FDA-Public Use
  Company Number: 2008-184661-NL

PATIENT
  Age: 39 Year
  Sex: Female

DRUGS (1)
  1. NUVARING [Suspect]
     Indication: CONTRACEPTION
     Dosage: 3 WEEKS IN / 1 WEEK OUT
     Dates: start: 20050101, end: 20060929

REACTIONS (2)
  - MIGRAINE WITH AURA [None]
  - PERIPHERAL ARTERIAL OCCLUSIVE DISEASE [None]
